FAERS Safety Report 9639732 (Version 2)
Quarter: 2013Q4

REPORT INFORMATION
  Report Type: Spontaneous
  Country: GB (occurrence: GB)
  Receive Date: 20131023
  Receipt Date: 20131023
  Transmission Date: 20140711
  Serious: Yes (Disabling)
  Sender: FDA-Public Use
  Company Number: GB-009507513-1310GBR001580

PATIENT
  Sex: Male

DRUGS (2)
  1. TIMOPTOL OPHTHAL SOL 0.5% [Suspect]
     Indication: GLAUCOMA
     Dosage: UNK
     Route: 047
  2. XALATAN [Suspect]
     Indication: GLAUCOMA
     Dosage: EYE DROPS, INVESTIGATING BOTH EYE DRPS
     Route: 047

REACTIONS (1)
  - Anosmia [Not Recovered/Not Resolved]
